FAERS Safety Report 22347125 (Version 1)
Quarter: 2023Q2

REPORT INFORMATION
  Report Type: Spontaneous
  Country: US (occurrence: US)
  Receive Date: 20230520
  Receipt Date: 20230520
  Transmission Date: 20230722
  Serious: No
  Sender: FDA-Public Use
  Company Number: US-JNJFOC-20230536774

PATIENT
  Age: 53 Year
  Sex: Male
  Weight: 93.978 kg

DRUGS (6)
  1. CONCERTA [Suspect]
     Active Substance: METHYLPHENIDATE HYDROCHLORIDE
     Indication: Attention deficit hyperactivity disorder
     Route: 048
     Dates: start: 2008
  2. DULOXETINE [Concomitant]
     Active Substance: DULOXETINE
  3. ATENOLOL [Concomitant]
     Active Substance: ATENOLOL
     Indication: Blood pressure measurement
  4. LOSARTAN [Concomitant]
     Active Substance: LOSARTAN
     Indication: Blood pressure measurement
  5. EVOLOCUMAB [Concomitant]
     Active Substance: EVOLOCUMAB
     Indication: Blood cholesterol
  6. EVOLOCUMAB [Concomitant]
     Active Substance: EVOLOCUMAB
     Indication: Blood cholesterol

REACTIONS (2)
  - Product dose omission issue [Unknown]
  - Product availability issue [Unknown]

NARRATIVE: CASE EVENT DATE: 20230401
